FAERS Safety Report 9349777 (Version 1)
Quarter: 2013Q2

REPORT INFORMATION
  Report Type: Spontaneous
  Country: MX (occurrence: MX)
  Receive Date: 20130614
  Receipt Date: 20130614
  Transmission Date: 20140414
  Serious: Yes (Other)
  Sender: FDA-Public Use
  Company Number: MX-BAYER-2013-071609

PATIENT
  Age: 70 Year
  Sex: Female

DRUGS (2)
  1. ASPIRINA PROTECT [Suspect]
     Dosage: 100 MG, UNK
     Route: 048
  2. CLOPIDOGREL [Concomitant]
     Dosage: 75 MG, UNK
     Route: 048

REACTIONS (1)
  - Cerebral infarction [Unknown]
